FAERS Safety Report 18730419 (Version 1)
Quarter: 2021Q1

REPORT INFORMATION
  Report Type: Spontaneous
  Country: FR (occurrence: FR)
  Receive Date: 20210112
  Receipt Date: 20210112
  Transmission Date: 20210419
  Serious: Yes (Hospitalization)
  Sender: FDA-Public Use
  Company Number: FR-TEVA-2020-FR-1865549

PATIENT
  Age: 40 Year
  Sex: Female
  Weight: 59 kg

DRUGS (3)
  1. DOXORUBICINE [Suspect]
     Active Substance: DOXORUBICIN
     Indication: BREAST CANCER
     Dosage: 50MG/M2
     Route: 042
     Dates: start: 1995
  2. CYCLOPHOSPHAMIDE. [Concomitant]
     Active Substance: CYCLOPHOSPHAMIDE
  3. FLUOROURACILE [Concomitant]
     Active Substance: FLUOROURACIL

REACTIONS (3)
  - Toxic cardiomyopathy [Recovering/Resolving]
  - Cardiac failure [Recovering/Resolving]
  - Cardiac failure [Recovering/Resolving]

NARRATIVE: CASE EVENT DATE: 1997
